FAERS Safety Report 9129019 (Version 2)
Quarter: 2013Q3

REPORT INFORMATION
  Report Type: Spontaneous
  Country: US (occurrence: US)
  Receive Date: 20130228
  Receipt Date: 20130710
  Transmission Date: 20140515
  Serious: Yes (Other)
  Sender: FDA-Public Use
  Company Number: US-PFIZER INC-2013066745

PATIENT
  Age: 33 Year
  Sex: Male
  Weight: 69.39 kg

DRUGS (2)
  1. XYNTHA [Suspect]
     Indication: PROPHYLAXIS
     Dosage: 90 IU/KG, 3 TIMES A WEEK
     Dates: start: 201007
  2. XYNTHA [Suspect]
     Indication: FACTOR VIII DEFICIENCY

REACTIONS (3)
  - Haemorrhage [Unknown]
  - Joint injury [Unknown]
  - Off label use [Unknown]
